FAERS Safety Report 25790691 (Version 1)
Quarter: 2025Q3

REPORT INFORMATION
  Report Type: Report from Study
  Country: CA (occurrence: None)
  Receive Date: 20250911
  Receipt Date: 20250911
  Transmission Date: 20251020
  Serious: Yes (Other)
  Sender: ORION
  Company Number: CA-PFIZER INC-202500178596

PATIENT
  Age: 78 Year
  Sex: Female

DRUGS (2)
  1. METHOTREXATE [Suspect]
     Active Substance: METHOTREXATE
     Indication: Product used for unknown indication
  2. HYRIMOZ [Suspect]
     Active Substance: ADALIMUMAB-ADAZ
     Indication: Rheumatoid arthritis

REACTIONS (10)
  - Drug ineffective [Unknown]
  - Alopecia [Unknown]
  - Bronchitis [Unknown]
  - Fatigue [Unknown]
  - Sinusitis [Unknown]
  - Urinary tract infection [Unknown]
  - Gait inability [Unknown]
  - Lacrimation increased [Unknown]
  - Peripheral swelling [Unknown]
  - Rheumatoid arthritis [Unknown]
